FAERS Safety Report 4557922-0 (Version None)
Quarter: 2005Q1

REPORT INFORMATION
  Report Type: 
  Country: None (occurrence: None)
  Receive Date: 20050121
  Receipt Date: 20040127
  Transmission Date: 20050727
  Serious: No
  Sender: FDA-Public Use
  Company Number: US-BRISTOL-MYERS SQUIBB COMPANY-12493482

PATIENT
  Sex: Female

DRUGS (10)
  1. SERZONE [Suspect]
     Route: 048
     Dates: start: 19970101
  2. INDERAL [Concomitant]
  3. PROZAC [Concomitant]
  4. DARVOCET [Concomitant]
  5. ULTRAM [Concomitant]
  6. PAXIL [Concomitant]
  7. FLEXERIL [Concomitant]
  8. ATIVAN [Concomitant]
  9. TOPROL-XL [Concomitant]
  10. PREMARIN [Concomitant]

REACTIONS (7)
  - ABDOMINAL PAIN [None]
  - ALANINE AMINOTRANSFERASE INCREASED [None]
  - ASPARTATE AMINOTRANSFERASE INCREASED [None]
  - BLOOD ALKALINE PHOSPHATASE INCREASED [None]
  - CHEST PAIN [None]
  - HAEMANGIOMA OF LIVER [None]
  - HEPATIC STEATOSIS [None]
